APPROVED DRUG PRODUCT: EPINEPHRINE (AUTOINJECTOR)
Active Ingredient: EPINEPHRINE
Strength: 0.15MG/DELIVERY
Dosage Form/Route: INJECTABLE;INTRAMUSCULAR, SUBCUTANEOUS
Application: A090589 | Product #002 | TE Code: AB
Applicant: TEVA PHARMACEUTICALS USA INC
Approved: Aug 16, 2018 | RLD: No | RS: No | Type: RX